FAERS Safety Report 4261870-3 (Version None)
Quarter: 2004Q1

REPORT INFORMATION
  Report Type: 
  Country: None (occurrence: None)
  Receive Date: 20040102
  Receipt Date: 20031216
  Transmission Date: 20041129
  Serious: Yes (Other)
  Sender: FDA-Public Use
  Company Number: PHEH2003US11503

PATIENT
  Age: 0 Year
  Sex: Male

DRUGS (1)
  1. DIOVAN [Suspect]
     Indication: HYPERTENSION
     Dosage: 80 MG, QD
     Route: 048
     Dates: start: 20010801, end: 20010901

REACTIONS (5)
  - ASTHENIA [None]
  - EYE DISORDER [None]
  - OCULAR ICTERUS [None]
  - SCAR [None]
  - SCLERAL DISORDER [None]
